FAERS Safety Report 11130285 (Version 2)
Quarter: 2015Q2

REPORT INFORMATION
  Report Type: Other
  Country: IL (occurrence: IL)
  Receive Date: 20150522
  Receipt Date: 20150609
  Transmission Date: 20150821
  Serious: Yes (Death)
  Sender: FDA-Public Use
  Company Number: IL-ACTELION-A-CH2015-118133

PATIENT
  Age: 47 Year
  Sex: Female

DRUGS (4)
  1. IMMUNOGLOBULINS [Concomitant]
     Active Substance: HUMAN IMMUNOGLOBULIN G
  2. MYCOPHENOLATE MOFETIL. [Concomitant]
     Active Substance: MYCOPHENOLATE MOFETIL
  3. CYCLOPHOSPHAMIDE. [Concomitant]
     Active Substance: CYCLOPHOSPHAMIDE
  4. TRACLEER [Suspect]
     Active Substance: BOSENTAN\BOSENTAN MONOHYDRATE
     Indication: SYSTEMIC SCLEROSIS
     Route: 048

REACTIONS (2)
  - Systemic sclerosis [Fatal]
  - Arrhythmia [Fatal]
